FAERS Safety Report 23418134 (Version 5)
Quarter: 2024Q1

REPORT INFORMATION
  Report Type: Spontaneous
  Country: US (occurrence: US)
  Receive Date: 20240118
  Receipt Date: 20240221
  Transmission Date: 20240410
  Serious: Yes (Other)
  Sender: FDA-Public Use
  Company Number: US-PFIZER INC-PV202400006547

PATIENT
  Age: 41 Year
  Sex: Female

DRUGS (1)
  1. IBRANCE [Suspect]
     Active Substance: PALBOCICLIB
     Dosage: 125 MG
     Dates: start: 20240111

REACTIONS (14)
  - Neuropathy peripheral [Unknown]
  - Paraesthesia [Unknown]
  - Fatigue [Unknown]
  - Stomatitis [Unknown]
  - Dry mouth [Unknown]
  - Epistaxis [Unknown]
  - Product packaging difficult to open [Unknown]
  - Pain [Unknown]
  - Alopecia [Unknown]
  - Nausea [Recovering/Resolving]
  - Pyrexia [Unknown]
  - Aphasia [Unknown]
  - Arthralgia [Unknown]
  - Cancer pain [Not Recovered/Not Resolved]

NARRATIVE: CASE EVENT DATE: 20240101
